FAERS Safety Report 12585140 (Version 1)
Quarter: 2016Q3

REPORT INFORMATION
  Report Type: Spontaneous
  Country: US (occurrence: US)
  Receive Date: 20160723
  Receipt Date: 20160723
  Transmission Date: 20161109
  Serious: No
  Sender: FDA-Public Use
  Company Number: US-009507513-1607USA000033

PATIENT
  Age: 57 Year
  Sex: Female

DRUGS (1)
  1. INTRON A [Suspect]
     Active Substance: INTERFERON ALFA-2B
     Indication: MALIGNANT MELANOMA
     Dosage: 20 MILLION UNITS , TIW (THREE TIMES WEEKLY)
     Route: 058

REACTIONS (3)
  - Dehydration [Not Recovered/Not Resolved]
  - Product use issue [Unknown]
  - Dysgeusia [Not Recovered/Not Resolved]
